FAERS Safety Report 13028383 (Version 2)
Quarter: 2017Q1

REPORT INFORMATION
  Report Type: Spontaneous
  Country: JP (occurrence: JP)
  Receive Date: 20161214
  Receipt Date: 20170201
  Transmission Date: 20170428
  Serious: Yes (Death, Hospitalization, Other)
  Sender: FDA-Public Use
  Company Number: JP-SA-2016SA225486

PATIENT
  Age: 37 Year
  Sex: Male

DRUGS (6)
  1. PACLITAXEL. [Suspect]
     Active Substance: PACLITAXEL
     Indication: TESTIS CANCER
     Route: 041
     Dates: start: 20140314, end: 20140314
  2. PACLITAXEL. [Suspect]
     Active Substance: PACLITAXEL
     Indication: TESTIS CANCER
     Route: 041
     Dates: start: 20140424, end: 20140424
  3. ELPLAT [Suspect]
     Active Substance: OXALIPLATIN
     Indication: TESTIS CANCER
     Route: 041
     Dates: start: 20140314, end: 20140314
  4. GEMCITABINE [Concomitant]
     Active Substance: GEMCITABINE\GEMCITABINE HYDROCHLORIDE
     Indication: TESTIS CANCER
     Route: 042
     Dates: start: 20140424, end: 20140424
  5. ELPLAT [Suspect]
     Active Substance: OXALIPLATIN
     Indication: TESTIS CANCER
     Route: 041
     Dates: start: 20140424, end: 20140424
  6. GEMCITABINE [Concomitant]
     Active Substance: GEMCITABINE\GEMCITABINE HYDROCHLORIDE
     Indication: TESTIS CANCER
     Route: 042
     Dates: start: 20140314, end: 20140314

REACTIONS (4)
  - Shock haemorrhagic [Fatal]
  - Pulmonary embolism [Unknown]
  - Interstitial lung disease [Recovered/Resolved]
  - Iliac artery rupture [Fatal]

NARRATIVE: CASE EVENT DATE: 20140601
